FAERS Safety Report 6523384-7 (Version None)
Quarter: 2009Q4

REPORT INFORMATION
  Report Type: 
  Country: None (occurrence: None)
  Receive Date: 20091231
  Receipt Date: 20091228
  Transmission Date: 20100525
  Serious: Yes (Death)
  Sender: FDA-Public Use
  Company Number: US-BRISTOL-MYERS SQUIBB COMPANY-14902696

PATIENT

DRUGS (4)
  1. SUSTIVA [Suspect]
     Dosage: COURSE:1
     Route: 064
     Dates: end: 20080904
  2. EPIVIR [Suspect]
     Route: 064
  3. VIREAD [Suspect]
     Route: 064
     Dates: start: 20080904
  4. ALUVIA [Suspect]
     Indication: ANTIRETROVIRAL THERAPY

REACTIONS (1)
  - STILLBIRTH [None]
